FAERS Safety Report 9520634 (Version 3)
Quarter: 2013Q3

REPORT INFORMATION
  Report Type: Report from Study
  Country: DE (occurrence: DE)
  Receive Date: 20130913
  Receipt Date: 20130925
  Transmission Date: 20140515
  Serious: Yes (Death, Hospitalization, Other)
  Sender: FDA-Public Use
  Company Number: DE-ROCHE-1240489

PATIENT
  Age: 64 Year
  Sex: Female
  Weight: 80 kg

DRUGS (4)
  1. BEVACIZUMAB [Suspect]
     Indication: OVARIAN CANCER
     Dosage: 15 MG/KG
     Route: 042
     Dates: start: 20130214
  2. GEMCITABINE [Concomitant]
     Indication: OVARIAN CANCER
     Route: 042
     Dates: start: 20130214, end: 20130221
  3. CARBOPLATIN [Concomitant]
     Indication: OVARIAN CANCER
     Dosage: AUC 4
     Route: 042
     Dates: start: 20130214, end: 20130214
  4. CARBOPLATIN [Concomitant]
     Route: 065
     Dates: start: 201108, end: 201201

REACTIONS (5)
  - Enterocutaneous fistula [Fatal]
  - Vaginal fistula [Unknown]
  - Abdominal abscess [Unknown]
  - Deep vein thrombosis [Unknown]
  - Eye infection fungal [Recovered/Resolved]
